FAERS Safety Report 22115433 (Version 4)
Quarter: 2023Q2

REPORT INFORMATION
  Report Type: Report from Study
  Country: AE (occurrence: AE)
  Receive Date: 20230320
  Receipt Date: 20230518
  Transmission Date: 20230721
  Serious: Yes (Hospitalization)
  Sender: FDA-Public Use
  Company Number: AE-002147023-NVSC2023AE016835

PATIENT
  Age: 44 Year
  Sex: Female

DRUGS (4)
  1. ADAKVEO [Suspect]
     Active Substance: CRIZANLIZUMAB-TMCA
     Indication: Sickle cell anaemia with crisis
     Dosage: 450 MG, QMO
     Route: 042
     Dates: start: 20230107, end: 20230107
  2. ADAKVEO [Suspect]
     Active Substance: CRIZANLIZUMAB-TMCA
     Dosage: 450 MG (SECOND DOSE)
     Route: 065
     Dates: start: 20230121, end: 20230121
  3. ADAKVEO [Suspect]
     Active Substance: CRIZANLIZUMAB-TMCA
     Dosage: 450 MG, QMO (THIRD DOSE)
     Route: 042
     Dates: start: 20230318
  4. ADAKVEO [Suspect]
     Active Substance: CRIZANLIZUMAB-TMCA
     Dosage: 450 MG, QMO
     Route: 042
     Dates: start: 20230512, end: 20230512

REACTIONS (7)
  - Full blood count decreased [Recovering/Resolving]
  - Weight increased [Unknown]
  - Infusion related reaction [Unknown]
  - Peripheral swelling [Not Recovered/Not Resolved]
  - Vomiting [Recovered/Resolved]
  - Abdominal pain [Recovered/Resolved]
  - Vomiting [Recovered/Resolved]

NARRATIVE: CASE EVENT DATE: 20230121
